FAERS Safety Report 18693921 (Version 1)
Quarter: 2021Q1

REPORT INFORMATION
  Report Type: Other
  Country: ES (occurrence: ES)
  Receive Date: 20210104
  Receipt Date: 20210104
  Transmission Date: 20210419
  Serious: Yes (Other)
  Sender: FDA-Public Use
  Company Number: ES-ASTELLAS-2020US046430

PATIENT
  Age: 67 Year
  Sex: Female

DRUGS (1)
  1. ISAVUCONAZOLE [Suspect]
     Active Substance: ISAVUCONAZOLE
     Indication: BRONCHOPULMONARY ASPERGILLOSIS
     Route: 042
     Dates: start: 20201127, end: 20201203

REACTIONS (1)
  - Optic neuritis [Recovering/Resolving]

NARRATIVE: CASE EVENT DATE: 20201129
